FAERS Safety Report 25763120 (Version 2)
Quarter: 2025Q3

REPORT INFORMATION
  Report Type: Report from Study
  Country: JP (occurrence: JP)
  Receive Date: 20250905
  Receipt Date: 20250916
  Transmission Date: 20251021
  Serious: Yes (Hospitalization)
  Sender: ABBVIE
  Company Number: JP-ABBVIE-6444671

PATIENT
  Age: 64 Year
  Sex: Male
  Weight: 46.9 kg

DRUGS (9)
  1. RISANKIZUMAB [Suspect]
     Active Substance: RISANKIZUMAB
     Indication: Crohn^s disease
     Route: 058
     Dates: start: 20240807
  2. RISANKIZUMAB [Suspect]
     Active Substance: RISANKIZUMAB
     Indication: Crohn^s disease
     Route: 042
     Dates: start: 20240508, end: 20240709
  3. BETAMETHASONE SODIUM PHOSPHATE [Concomitant]
     Active Substance: BETAMETHASONE SODIUM PHOSPHATE
     Indication: Uveitis
     Dosage: DOSE: APPROPRIATE AMOUNT
     Dates: start: 20241125
  4. BUTYRIC ACID [Concomitant]
     Active Substance: BUTYRIC ACID
     Indication: Gastrointestinal disorder
     Route: 048
     Dates: start: 20101116
  5. CEFMETAZOLE SODIUM [Concomitant]
     Active Substance: CEFMETAZOLE SODIUM
     Indication: Jaundice cholestatic
     Dates: start: 20250605
  6. AMINO ACIDS\CARBOHYDRATES\MINERALS\SOYBEAN OIL\VITAMINS [Concomitant]
     Active Substance: AMINO ACIDS\CARBOHYDRATES\MINERALS\SOYBEAN OIL\VITAMINS
     Indication: Nutritional supplementation
     Route: 048
     Dates: start: 20241117
  7. LEVOFLOXACIN HEMIHYDRATE [Concomitant]
     Active Substance: LEVOFLOXACIN
     Indication: Uveitis
     Dosage: DOSE: APPROPRIATE AMOUNT
     Route: 048
     Dates: start: 20241125
  8. LOXOPROFEN SODIUM DIHYDRATE [Concomitant]
     Active Substance: LOXOPROFEN SODIUM DIHYDRATE
     Indication: Procedural pain
     Route: 048
     Dates: start: 20240813
  9. MESALAMINE [Concomitant]
     Active Substance: MESALAMINE
     Indication: Crohn^s disease
     Route: 048
     Dates: start: 20101116

REACTIONS (1)
  - Gastric perforation [Recovered/Resolved with Sequelae]

NARRATIVE: CASE EVENT DATE: 20250812
